FAERS Safety Report 15948484 (Version 2)
Quarter: 2021Q1

REPORT INFORMATION
  Report Type: Spontaneous
  Country: US (occurrence: US)
  Receive Date: 20190211
  Receipt Date: 20210225
  Transmission Date: 20210419
  Serious: No
  Sender: FDA-Public Use
  Company Number: US-SA-2019SA035774

PATIENT
  Age: 39 Year
  Sex: Female

DRUGS (2)
  1. DUPIXENT [Suspect]
     Active Substance: DUPILUMAB
     Dosage: 1 DF, QOW
     Route: 058
  2. DUPIXENT [Suspect]
     Active Substance: DUPILUMAB
     Indication: EOSINOPHILIA
     Dosage: 600 MG, 1X
     Route: 058
     Dates: start: 20190115, end: 20190115

REACTIONS (3)
  - Product use in unapproved indication [Unknown]
  - Thirst [Unknown]
  - Dry mouth [Unknown]

NARRATIVE: CASE EVENT DATE: 201901
